FAERS Safety Report 19688674 (Version 7)
Quarter: 2023Q2

REPORT INFORMATION
  Report Type: Spontaneous
  Country: US (occurrence: US)
  Receive Date: 20210812
  Receipt Date: 20230406
  Transmission Date: 20230722
  Serious: Yes (Other)
  Sender: FDA-Public Use
  Company Number: US-BLUEPRINT MEDICINES CORPORATION-SP-US-2021-001243

PATIENT
  Sex: Female

DRUGS (4)
  1. AYVAKIT [Suspect]
     Active Substance: AVAPRITINIB
     Indication: Gastrointestinal stromal tumour
     Dosage: 1 TABLET BY MOUTH DAILY FOR 5 DAYS FOLLOWED BY 2 DAYS OF NOT TAKING
     Route: 048
     Dates: start: 20200123
  2. AYVAKIT [Suspect]
     Active Substance: AVAPRITINIB
     Dosage: 1 TABLET BY MOUTH DAILY FOR 5 DAYS FOLLOWED BY 2 DAYS OF NOT TAKING OR 1 PER 2 DAYS
     Route: 048
     Dates: start: 20200208
  3. AYVAKIT [Suspect]
     Active Substance: AVAPRITINIB
     Route: 048
  4. AYVAKIT [Suspect]
     Active Substance: AVAPRITINIB
     Route: 065

REACTIONS (34)
  - Basal cell carcinoma [Unknown]
  - Sjogren^s syndrome [Unknown]
  - Neuropathy peripheral [Unknown]
  - Stent placement [Unknown]
  - Haemorrhage [Unknown]
  - Nocturia [Unknown]
  - Tremor [Not Recovered/Not Resolved]
  - Feeling abnormal [Not Recovered/Not Resolved]
  - Drug ineffective [Unknown]
  - Blood potassium increased [Unknown]
  - Blood creatinine increased [Recovering/Resolving]
  - Headache [Not Recovered/Not Resolved]
  - White blood cell count decreased [Unknown]
  - Haemoglobin decreased [Unknown]
  - Red blood cell count decreased [Unknown]
  - Pyrexia [Not Recovered/Not Resolved]
  - Decreased appetite [Not Recovered/Not Resolved]
  - Back pain [Unknown]
  - Neuralgia [Unknown]
  - Raynaud^s phenomenon [Not Recovered/Not Resolved]
  - Pain [Unknown]
  - Sacroiliitis [Unknown]
  - Product dose omission issue [Unknown]
  - Abdominal distension [Not Recovered/Not Resolved]
  - Neoplasm [Unknown]
  - Umbilical hernia [Unknown]
  - Off label use [Unknown]
  - Dry eye [Unknown]
  - Dry mouth [Unknown]
  - Nail infection [Unknown]
  - Arthralgia [Unknown]
  - Eye irritation [Unknown]
  - Dehydration [Unknown]
  - Decubitus ulcer [Unknown]
